FAERS Safety Report 13940503 (Version 1)
Quarter: 2017Q3

REPORT INFORMATION
  Report Type: Spontaneous
  Country: US (occurrence: US)
  Receive Date: 20170906
  Receipt Date: 20170906
  Transmission Date: 20171127
  Serious: No
  Sender: FDA-Public Use
  Company Number: US-PFIZER INC-2017378214

PATIENT
  Age: 43 Year
  Sex: Male
  Weight: 65.58 kg

DRUGS (1)
  1. DILANTIN [Suspect]
     Active Substance: PHENYTOIN
     Dosage: 900 MG, 1X/DAY (300 MG, TAKE 3 CAPSULE AT BED TIME)
     Route: 048

REACTIONS (1)
  - Treatment noncompliance [Unknown]
